FAERS Safety Report 13695256 (Version 3)
Quarter: 2017Q4

REPORT INFORMATION
  Report Type: Spontaneous
  Country: CH (occurrence: CH)
  Receive Date: 20170627
  Receipt Date: 20171030
  Transmission Date: 20180320
  Serious: Yes (Hospitalization, Other)
  Sender: FDA-Public Use
  Company Number: CH-VIIV HEALTHCARE LIMITED-CH2017GSK094636

PATIENT
  Age: 50 Year
  Sex: Male
  Weight: 76 kg

DRUGS (5)
  1. SURMONTIL [Concomitant]
     Active Substance: TRIMIPRAMINE MALEATE
     Indication: DEPRESSION
     Dosage: UNK
     Route: 048
     Dates: start: 201601
  2. CURAKNE [Concomitant]
     Indication: ACNE
     Dosage: 40 MG, 1D
     Route: 048
     Dates: start: 201605, end: 201705
  3. VITAMIN D3 [Concomitant]
     Active Substance: CHOLECALCIFEROL
     Indication: VITAMIN D DEFICIENCY
     Dosage: 50 DF, UNK
     Route: 048
     Dates: start: 201509
  4. TRIUMEQ [Suspect]
     Active Substance: ABACAVIR SULFATE\DOLUTEGRAVIR SODIUM\LAMIVUDINE
     Indication: HIV INFECTION
     Dosage: UNK
     Route: 048
     Dates: start: 20150511, end: 20170608
  5. TRUVADA [Concomitant]
     Active Substance: EMTRICITABINE\TENOFOVIR DISOPROXIL FUMARATE
     Indication: HIV INFECTION
     Dosage: UNK
     Route: 048

REACTIONS (12)
  - Tendon rupture [Recovering/Resolving]
  - Hypoaesthesia [Unknown]
  - Muscle spasms [Recovering/Resolving]
  - Myalgia [Recovering/Resolving]
  - Nerve compression [Unknown]
  - Muscular weakness [Recovering/Resolving]
  - Sciatica [Unknown]
  - Inguinal hernia [Unknown]
  - Inguinal hernia repair [Unknown]
  - Gait disturbance [Unknown]
  - Muscle rupture [Unknown]
  - Myosclerosis [Recovering/Resolving]

NARRATIVE: CASE EVENT DATE: 201608
